FAERS Safety Report 12340518 (Version 1)
Quarter: 2016Q2

REPORT INFORMATION
  Report Type: Spontaneous
  Country: AU (occurrence: AU)
  Receive Date: 20160506
  Receipt Date: 20160506
  Transmission Date: 20160815
  Serious: Yes (Death, Hospitalization, Other)
  Sender: FDA-Public Use
  Company Number: PHHY2016AU059774

PATIENT
  Age: 69 Year
  Sex: Male

DRUGS (3)
  1. EVEROLIMUS [Suspect]
     Active Substance: EVEROLIMUS
     Indication: METASTATIC RENAL CELL CARCINOMA
     Dosage: 10 MG
     Route: 065
     Dates: start: 201502
  2. NIVOLUMAB [Suspect]
     Active Substance: NIVOLUMAB
     Indication: METASTATIC RENAL CELL CARCINOMA
     Dosage: UNK
     Route: 065
  3. RAMIPRIL. [Concomitant]
     Active Substance: RAMIPRIL
     Indication: HYPERTENSION
     Dosage: UNK
     Route: 065

REACTIONS (46)
  - Pneumonia [Unknown]
  - Coma scale abnormal [Unknown]
  - Streptococcus test positive [Unknown]
  - Blood alkaline phosphatase increased [Unknown]
  - Abdominal pain upper [Unknown]
  - Bronchiectasis [Unknown]
  - Productive cough [Unknown]
  - Respiratory failure [Unknown]
  - Pneumonitis [Unknown]
  - Metastases to spine [Unknown]
  - Lymphadenopathy [Unknown]
  - Lethargy [Unknown]
  - Multiple organ dysfunction syndrome [Unknown]
  - Dilatation intrahepatic duct acquired [Unknown]
  - Blood bilirubin increased [Unknown]
  - Gamma-glutamyltransferase increased [Unknown]
  - Dyspnoea exertional [Unknown]
  - Metastases to peritoneum [Unknown]
  - Metastases to muscle [Unknown]
  - Gastric mucosal lesion [Unknown]
  - Aspartate aminotransferase increased [Unknown]
  - Blood lactate dehydrogenase increased [Unknown]
  - Blood pressure decreased [Unknown]
  - Death [Fatal]
  - Dyspnoea [Unknown]
  - Anaemia [Unknown]
  - Melaena [Unknown]
  - Septic shock [Unknown]
  - Metastases to liver [Unknown]
  - Neutrophil count increased [Unknown]
  - Lymphadenopathy mediastinal [Unknown]
  - Hypothyroidism [Unknown]
  - Acute myocardial infarction [Unknown]
  - Interstitial lung disease [Unknown]
  - Polyarteritis nodosa [Unknown]
  - Abdominal lymphadenopathy [Unknown]
  - Stomatitis [Unknown]
  - Decreased appetite [Unknown]
  - Fatigue [Unknown]
  - Oxygen saturation decreased [Unknown]
  - Nasal congestion [Unknown]
  - Lower respiratory tract infection [Unknown]
  - Pancreatic mass [Unknown]
  - Bile duct obstruction [Unknown]
  - Alanine aminotransferase increased [Unknown]
  - Blood creatinine increased [Unknown]

NARRATIVE: CASE EVENT DATE: 20150511
